FAERS Safety Report 9565194 (Version 1)
Quarter: 2013Q3

REPORT INFORMATION
  Report Type: Report from Study
  Country: AR (occurrence: AR)
  Receive Date: 20130930
  Receipt Date: 20130930
  Transmission Date: 20140515
  Serious: Yes (Hospitalization, Other)
  Sender: FDA-Public Use
  Company Number: PHHY2013AR108763

PATIENT
  Age: 63 Year
  Sex: Male

DRUGS (2)
  1. DIOVAN [Suspect]
     Indication: HYPERTENSION
     Dosage: 1 TABLET (320 MG), DAILY
     Route: 048
     Dates: start: 20130816
  2. DIOVAN [Suspect]
     Dosage: 1 TABLET (80 MG), DAILY

REACTIONS (1)
  - Cerebrovascular accident [Recovering/Resolving]
